FAERS Safety Report 25074722 (Version 1)
Quarter: 2025Q1

REPORT INFORMATION
  Report Type: Spontaneous
  Country: US (occurrence: US)
  Receive Date: 20250313
  Receipt Date: 20250313
  Transmission Date: 20250409
  Serious: Yes (Life-Threatening, Other)
  Sender: SANDOZ
  Company Number: US-SANDOZ-SDZ2025US015591

PATIENT
  Age: 24 Year
  Sex: Female

DRUGS (1)
  1. METFORMIN [Suspect]
     Active Substance: METFORMIN HYDROCHLORIDE
     Indication: Mental disorder
     Route: 065

REACTIONS (4)
  - Hypothermia [Unknown]
  - Hypoglycaemia [Unknown]
  - Overdose [Unknown]
  - Product use in unapproved indication [Unknown]
